FAERS Safety Report 5111362-4 (Version None)
Quarter: 2006Q3

REPORT INFORMATION
  Report Type: 
  Country: None (occurrence: None)
  Receive Date: 20060922
  Receipt Date: 20060118
  Transmission Date: 20061208
  Serious: No
  Sender: FDA-Public Use
  Company Number: US-GLAXOSMITHKLINE-A0589776A

PATIENT
  Age: 57 Year
  Sex: Female

DRUGS (1)
  1. ABREVA [Suspect]
     Dates: start: 20061223

REACTIONS (4)
  - CONJUNCTIVITIS ALLERGIC [None]
  - EYE PAIN [None]
  - EYELIDS PRURITUS [None]
  - PRURITUS [None]
